FAERS Safety Report 9297036 (Version 1)
Quarter: 2013Q2

REPORT INFORMATION
  Report Type: Spontaneous
  Country: CN (occurrence: CN)
  Receive Date: 20130519
  Receipt Date: 20130519
  Transmission Date: 20140414
  Serious: Yes (Hospitalization)
  Sender: FDA-Public Use
  Company Number: CN-MYLANLABS-2013S1009938

PATIENT
  Age: 13 Year
  Sex: Female

DRUGS (5)
  1. TOPIRAMATE [Suspect]
     Indication: MENTAL DISORDER
     Dosage: 150 MG/DAY
     Route: 065
  2. TOPIRAMATE [Suspect]
     Indication: MENTAL DISORDER
     Dosage: 175 MG/DAY
     Route: 065
  3. OLANZAPINE [Suspect]
     Indication: MENTAL DISORDER
     Dosage: 5 MG/DAY
     Route: 065
  4. OLANZAPINE [Suspect]
     Indication: MENTAL DISORDER
     Route: 065
  5. OLANZAPINE [Suspect]
     Indication: MENTAL DISORDER
     Dosage: 15 MG/DAY
     Route: 065

REACTIONS (4)
  - Hallucinations, mixed [Recovered/Resolved]
  - Renal tubular acidosis [Recovered/Resolved]
  - Restlessness [Unknown]
  - Metabolic acidosis [Recovered/Resolved]
